FAERS Safety Report 18717709 (Version 1)
Quarter: 2021Q1

REPORT INFORMATION
  Report Type: Spontaneous
  Country: US (occurrence: US)
  Receive Date: 20210108
  Receipt Date: 20210108
  Transmission Date: 20210419
  Serious: Yes (Hospitalization)
  Sender: FDA-Public Use
  Company Number: None

PATIENT
  Age: 56 Year
  Sex: Male

DRUGS (1)
  1. CETUXIMAB. [Suspect]
     Active Substance: CETUXIMAB
     Route: 042
     Dates: start: 20201013, end: 20201110

REACTIONS (6)
  - Infusion related reaction [None]
  - Heart rate increased [None]
  - Dyspnoea [None]
  - Chest pain [None]
  - Back pain [None]
  - Hypoxia [None]

NARRATIVE: CASE EVENT DATE: 20201110
